FAERS Safety Report 14237191 (Version 2)
Quarter: 2017Q4

REPORT INFORMATION
  Report Type: Report from Study
  Country: JP (occurrence: JP)
  Receive Date: 20171129
  Receipt Date: 20171206
  Transmission Date: 20180321
  Serious: Yes (Hospitalization, Other)
  Sender: FDA-Public Use
  Company Number: JP-INCYTE CORPORATION-2017IN009950

PATIENT

DRUGS (1)
  1. JAKAVI [Suspect]
     Active Substance: RUXOLITINIB
     Indication: POLYCYTHAEMIA VERA
     Dosage: 5 MG, BID
     Route: 048
     Dates: start: 20170830, end: 20171114

REACTIONS (4)
  - Haematochezia [Unknown]
  - Cerebral haemorrhage [Recovering/Resolving]
  - Colitis ulcerative [Unknown]
  - Cytomegalovirus infection [Unknown]
